FAERS Safety Report 4890297-6 (Version None)
Quarter: 2006Q1

REPORT INFORMATION
  Report Type: 
  Country: None (occurrence: None)
  Receive Date: 20060124
  Receipt Date: 20051001
  Transmission Date: 20060701
  Serious: Yes (Hospitalization, Other)
  Sender: FDA-Public Use
  Company Number: PR-MERCK-0510USA01855

PATIENT
  Age: 57 Year
  Sex: Male

DRUGS (1)
  1. VIOXX [Suspect]
     Route: 048

REACTIONS (17)
  - ACUTE CORONARY SYNDROME [None]
  - ANGINA PECTORIS [None]
  - ARRHYTHMIA [None]
  - BRADYCARDIA [None]
  - CARDIOVASCULAR DISORDER [None]
  - CEREBROVASCULAR ACCIDENT [None]
  - CONGESTIVE CARDIOMYOPATHY [None]
  - CORONARY ARTERY DISEASE [None]
  - GASTRITIS EROSIVE [None]
  - INTERVERTEBRAL DISC PROTRUSION [None]
  - MYOCARDIAL INFARCTION [None]
  - OESOPHAGITIS [None]
  - ORGAN FAILURE [None]
  - PULMONARY EMBOLISM [None]
  - SPINAL COLUMN STENOSIS [None]
  - SPONDYLOLISTHESIS [None]
  - THROMBOSIS [None]
